FAERS Safety Report 13957190 (Version 1)
Quarter: 2017Q3

REPORT INFORMATION
  Report Type: Spontaneous
  Country: US (occurrence: US)
  Receive Date: 20170911
  Receipt Date: 20170911
  Transmission Date: 20171128
  Serious: Yes (Hospitalization)
  Sender: FDA-Public Use
  Company Number: US-AQUA PHARMACEUTICALS-2017AQU000267

PATIENT

DRUGS (3)
  1. RETIN-A [Concomitant]
     Active Substance: TRETINOIN
     Route: 061
  2. ACZONE [Concomitant]
     Active Substance: DAPSONE
     Route: 061
  3. ACTICLATE [Suspect]
     Active Substance: DOXYCYCLINE HYCLATE
     Indication: ACNE
     Dosage: 150 MG, QD
     Route: 048
     Dates: start: 201704, end: 201707

REACTIONS (1)
  - West Nile viral infection [Recovered/Resolved]

NARRATIVE: CASE EVENT DATE: 201707
